FAERS Safety Report 7635591-0 (Version None)
Quarter: 2011Q3

REPORT INFORMATION
  Report Type: 
  Country: None (occurrence: None)
  Receive Date: 20110718
  Receipt Date: 20110706
  Transmission Date: 20111222
  Serious: Yes (Life-Threatening)
  Sender: FDA-Public Use
  Company Number: 2011FR0218

PATIENT
  Age: 59 Year
  Sex: Female

DRUGS (3)
  1. RIFAMPIN AND ISONIAZID [Concomitant]
  2. KINERET [Suspect]
     Indication: OSTEOARTHRITIS
     Dosage: 200 MG (200 MG,1 IN 1 D) SUBCUTANEOUS
     Route: 058
     Dates: start: 20100525, end: 20110524
  3. CELEBREX [Suspect]
     Indication: OSTEOARTHRITIS
     Dosage: 4 DOSAGE FORMS (2 DOSAGE FORMS,2 IN 1 D) ORAL
     Route: 048
     Dates: end: 20100728

REACTIONS (1)
  - MALIGNANT MELANOMA [None]
